FAERS Safety Report 6236418-4 (Version None)
Quarter: 2009Q2

REPORT INFORMATION
  Report Type: 
  Country: None (occurrence: None)
  Receive Date: 20090617
  Receipt Date: 20090604
  Transmission Date: 20091009
  Serious: Yes (Hospitalization, Other)
  Sender: FDA-Public Use
  Company Number: CERZ-1000666

PATIENT
  Age: 53 Year
  Sex: Male
  Weight: 70.6 kg

DRUGS (1)
  1. CEREZYME [Suspect]
     Indication: GAUCHER'S DISEASE
     Dosage: 5400 U, Q2W, INTRAVENOUS
     Route: 042
     Dates: start: 19940801

REACTIONS (1)
  - ARTHROPATHY [None]
